FAERS Safety Report 5560886-4 (Version None)
Quarter: 2007Q4

REPORT INFORMATION
  Report Type: 
  Country: None (occurrence: None)
  Receive Date: 20071215
  Receipt Date: 20071126
  Transmission Date: 20080405
  Serious: No
  Sender: FDA-Public Use
  Company Number: US-ABBOTT-07P-163-0426699-00

PATIENT
  Sex: Male

DRUGS (2)
  1. HUMIRA [Suspect]
     Indication: CROHN'S DISEASE
     Dosage: PEN
     Route: 058
     Dates: start: 20061101, end: 20071127
  2. HUMIRA [Suspect]
     Dosage: PEN
     Route: 058
     Dates: start: 20040801, end: 20061101

REACTIONS (4)
  - COUGH [None]
  - NASOPHARYNGITIS [None]
  - PHARYNGOLARYNGEAL PAIN [None]
  - PYREXIA [None]
